FAERS Safety Report 15462956 (Version 3)
Quarter: 2018Q4

REPORT INFORMATION
  Report Type: Spontaneous
  Country: US (occurrence: US)
  Receive Date: 20181004
  Receipt Date: 20181022
  Transmission Date: 20190204
  Serious: No
  Sender: FDA-Public Use
  Company Number: US-PFIZER INC-2018390591

PATIENT
  Sex: Female

DRUGS (2)
  1. CYTOMEL [Suspect]
     Active Substance: LIOTHYRONINE SODIUM
     Indication: HYPOTHYROIDISM
     Dosage: 535 MG, UNK
  2. CYTOMEL [Suspect]
     Active Substance: LIOTHYRONINE SODIUM
     Indication: ENDOCRINE DISORDER
     Dosage: 585 UG, DAILY (STATED HAS TO USE 50, 25, AND 5 MCG TABLETS)

REACTIONS (5)
  - Feeling abnormal [Unknown]
  - Overdose [Unknown]
  - Malaise [Unknown]
  - Arthralgia [Unknown]
  - Alopecia [Unknown]
